FAERS Safety Report 6614492-0 (Version None)
Quarter: 2010Q1

REPORT INFORMATION
  Report Type: 
  Country: None (occurrence: None)
  Receive Date: 20100304
  Receipt Date: 20100304
  Transmission Date: 20100710
  Serious: Yes (Life-Threatening)
  Sender: FDA-Public Use
  Company Number: None

PATIENT
  Age: 53 Year
  Sex: Male
  Weight: 124.7392 kg

DRUGS (1)
  1. MUCINEX DM [Suspect]
     Dosage: 1 TABLET 12 HOURS
     Dates: start: 20100222

REACTIONS (2)
  - COUGH [None]
  - LOSS OF CONSCIOUSNESS [None]
